FAERS Safety Report 5724853-X (Version None)
Quarter: 2008Q2

REPORT INFORMATION
  Report Type: 
  Country: None (occurrence: None)
  Receive Date: 20080429
  Receipt Date: 20080417
  Transmission Date: 20081010
  Serious: Yes (Other)
  Sender: FDA-Public Use
  Company Number: 2008US000334

PATIENT
  Age: 53 Year
  Sex: Female

DRUGS (6)
  1. PROGRAF [Suspect]
     Indication: RENAL TRANSPLANT
     Dosage: 1 DF, BID, ORAL
     Route: 048
     Dates: end: 20080101
  2. PREDNISOLONE [Concomitant]
  3. MYCOPHENOLATE MOFETIL [Concomitant]
  4. OMEPRAZOLE [Concomitant]
  5. ACETAMINOPHEN [Concomitant]
  6. AMLODIPINE [Concomitant]

REACTIONS (5)
  - BONE PAIN [None]
  - DIZZINESS [None]
  - GASTRIC ULCER [None]
  - MALAISE [None]
  - TREMOR [None]
